FAERS Safety Report 15798718 (Version 1)
Quarter: 2019Q1

REPORT INFORMATION
  Report Type: Spontaneous
  Country: DE (occurrence: DE)
  Receive Date: 20190108
  Receipt Date: 20190108
  Transmission Date: 20190417
  Serious: Yes (Other)
  Sender: FDA-Public Use
  Company Number: DE-PFIZER INC-2019005175

PATIENT

DRUGS (6)
  1. COLISTIN [Concomitant]
     Active Substance: COLISTIN
     Indication: ACINETOBACTER INFECTION
     Dosage: UNK
  2. MEROPENEM. [Suspect]
     Active Substance: MEROPENEM
     Dosage: UNK, (INFUSION AVOIDING HIGH PEAKS AND LOW TROUGHS)
     Route: 042
  3. MEROPENEM. [Suspect]
     Active Substance: MEROPENEM
     Indication: ACINETOBACTER INFECTION
     Dosage: 2 G, 4X/DAY, (EVERY 6 H)
     Route: 042
  4. MEROPENEM. [Suspect]
     Active Substance: MEROPENEM
     Dosage: 10 G, DAILY (INCREASED)
     Route: 042
  5. MEROPENEM. [Suspect]
     Active Substance: MEROPENEM
     Dosage: 15 G, DAILY, (2 G GIVEN OVER 3 H WITH A SINGLE DOSE OF 1 G/3 H ONCE DAILY)
     Route: 042
  6. FOSFOMYCIN [Concomitant]
     Active Substance: FOSFOMYCIN
     Indication: ACINETOBACTER INFECTION
     Dosage: UNK

REACTIONS (3)
  - Vomiting [Unknown]
  - Product use issue [Unknown]
  - Impaired gastric emptying [Unknown]
